FAERS Safety Report 4960092-8 (Version None)
Quarter: 2006Q1

REPORT INFORMATION
  Report Type: 
  Country: None (occurrence: None)
  Receive Date: 20060328
  Receipt Date: 20060322
  Transmission Date: 20060701
  Serious: Yes (Death, Other)
  Sender: FDA-Public Use
  Company Number: US-2005-007011

PATIENT
  Sex: Male

DRUGS (2)
  1. CAMPATH [Suspect]
     Dosage: 30 MG, 3X/WEEK; SEE IMAGE
     Dates: end: 20050401
  2. CAMPATH [Suspect]
     Dosage: 30 MG, 3X/WEEK; SEE IMAGE
     Dates: start: 20050304

REACTIONS (4)
  - ANAEMIA [None]
  - RENAL FAILURE [None]
  - RESPIRATORY DISORDER [None]
  - WHITE BLOOD CELL COUNT INCREASED [None]
